FAERS Safety Report 8404728-8 (Version None)
Quarter: 2012Q2

REPORT INFORMATION
  Report Type: 
  Country: None (occurrence: None)
  Receive Date: 20120601
  Receipt Date: 20120529
  Transmission Date: 20120825
  Serious: No
  Sender: FDA-Public Use
  Company Number: US-PFIZER INC-2012129349

PATIENT
  Sex: Female
  Weight: 61.224 kg

DRUGS (3)
  1. TIMOLOL [Concomitant]
     Dosage: UNK
     Dates: start: 20110101
  2. XALATAN [Suspect]
     Indication: GLAUCOMA
     Dosage: ONE DROP ONCE DAILY IN EACH EYE
     Route: 047
     Dates: start: 19980101
  3. LATANOPROST [Suspect]
     Indication: GLAUCOMA
     Dosage: ONE DROP ONCE DAILY IN EACH EYE
     Route: 047
     Dates: start: 20110101

REACTIONS (1)
  - BLOOD LEAD INCREASED [None]
